FAERS Safety Report 5717040-2 (Version None)
Quarter: 2008Q2

REPORT INFORMATION
  Report Type: 
  Country: None (occurrence: None)
  Receive Date: 20080423
  Receipt Date: 20080410
  Transmission Date: 20081010
  Serious: Yes (Hospitalization)
  Sender: FDA-Public Use
  Company Number: 2006BI000752

PATIENT
  Age: 71 Year
  Sex: Female
  Weight: 60.3284 kg

DRUGS (9)
  1. AVONEX [Suspect]
     Indication: MULTIPLE SCLEROSIS
     Dosage: 30 UG;QW;IM
     Route: 030
     Dates: start: 20010801
  2. GABAPENTIN [Concomitant]
  3. PAXIL [Concomitant]
  4. VERAPAMIL [Concomitant]
  5. AMBIEN [Concomitant]
  6. AVANDIA [Concomitant]
  7. LIPITOR [Concomitant]
  8. WELLBUTRIN [Concomitant]
  9. BENICAR [Concomitant]

REACTIONS (5)
  - BACK PAIN [None]
  - OSTEOPOROSIS [None]
  - PNEUMONIA [None]
  - PROCEDURAL PAIN [None]
  - SCIATICA [None]
